FAERS Safety Report 12252170 (Version 1)
Quarter: 2016Q2

REPORT INFORMATION
  Report Type: Spontaneous
  Country: US (occurrence: None)
  Receive Date: 20160408
  Receipt Date: 20160408
  Transmission Date: 20160815
  Serious: Yes (Hospitalization)
  Sender: FDA-Public Use
  Company Number: None

PATIENT
  Age: 74 Year
  Sex: Male
  Weight: 130 kg

DRUGS (2)
  1. RANOLAZINE [Suspect]
     Active Substance: RANOLAZINE
     Dosage: 500 MA SA MG BID PO
     Route: 048
     Dates: start: 20150330
  2. TRAMADOL. [Suspect]
     Active Substance: TRAMADOL
     Route: 048
     Dates: start: 20160322, end: 20160403

REACTIONS (5)
  - Tongue biting [None]
  - Benign prostatic hyperplasia [None]
  - Acute kidney injury [None]
  - Myoclonus [None]
  - Urinary retention [None]

NARRATIVE: CASE EVENT DATE: 20160402
